FAERS Safety Report 18455995 (Version 1)
Quarter: 2020Q4

REPORT INFORMATION
  Report Type: Other
  Country: RU (occurrence: RU)
  Receive Date: 20201103
  Receipt Date: 20201103
  Transmission Date: 20210114
  Serious: Yes (Other)
  Sender: FDA-Public Use
  Company Number: RU-INNOGENIX, LLC-2093542

PATIENT
  Age: 10 Month
  Sex: Female

DRUGS (4)
  1. METRONIDAZOLE. [Suspect]
     Active Substance: METRONIDAZOLE
     Indication: DIARRHOEA
     Route: 065
  2. LOPERAMIDE [Concomitant]
     Active Substance: LOPERAMIDE
     Route: 065
  3. DIOSMECTITE [Concomitant]
     Active Substance: MONTMORILLONITE
     Route: 065
  4. MESALAZINE [Concomitant]
     Active Substance: MESALAMINE
     Route: 065

REACTIONS (1)
  - Drug ineffective [Unknown]
